APPROVED DRUG PRODUCT: CAPTOPRIL
Active Ingredient: CAPTOPRIL
Strength: 100MG
Dosage Form/Route: TABLET;ORAL
Application: A074363 | Product #004
Applicant: CHARTWELL RX SCIENCES LLC
Approved: Nov 9, 1995 | RLD: No | RS: No | Type: DISCN